FAERS Safety Report 4407652-0 (Version None)
Quarter: 2004Q3

REPORT INFORMATION
  Report Type: 
  Country: None (occurrence: None)
  Receive Date: 20040721
  Receipt Date: 20040709
  Transmission Date: 20050211
  Serious: Yes (Death)
  Sender: FDA-Public Use
  Company Number: 04H-056-0266515-00

PATIENT
  Age: 72 Year
  Sex: Male
  Weight: 84 kg

DRUGS (3)
  1. MORPHINE SULFATE INJ [Suspect]
     Indication: ANALGESIC EFFECT
     Dosage: 10 MG, INTRATHECAL
     Route: 037
  2. BUPIVACAINE HCL [Suspect]
     Indication: ANALGESIC EFFECT
     Dosage: 7.5 MG, ONCE, INTRATHECAL
     Route: 039
  3. EPINEPHRINE [Concomitant]

REACTIONS (9)
  - CATHETER SITE INFECTION [None]
  - COMA [None]
  - DRUG INTERACTION [None]
  - HEART RATE DECREASED [None]
  - INADEQUATE ANALGESIA [None]
  - MIOSIS [None]
  - POST PROCEDURAL COMPLICATION [None]
  - RESPIRATORY DEPRESSION [None]
  - RESPIRATORY DISTRESS [None]
